FAERS Safety Report 25280194 (Version 1)
Quarter: 2025Q2

REPORT INFORMATION
  Report Type: Spontaneous
  Country: CN (occurrence: None)
  Receive Date: 20250507
  Receipt Date: 20250507
  Transmission Date: 20250717
  Serious: Yes (Other)
  Sender: INCYTE
  Company Number: CN-002147023-NVSC2025CN070400

PATIENT
  Age: 65 Year

DRUGS (2)
  1. RUXOLITINIB [Suspect]
     Active Substance: RUXOLITINIB
     Indication: Chronic myeloid leukaemia
     Dosage: 10 MG, BID
     Route: 065
  2. HYDROXYUREA [Concomitant]
     Active Substance: HYDROXYUREA
     Indication: White blood cell count increased
     Route: 065

REACTIONS (3)
  - Chronic myeloid leukaemia [Unknown]
  - Malignant neoplasm progression [Unknown]
  - Drug ineffective for unapproved indication [Unknown]
